FAERS Safety Report 9879412 (Version 1)
Quarter: 2014Q1

REPORT INFORMATION
  Report Type: Spontaneous
  Country: CH (occurrence: CH)
  Receive Date: 20140206
  Receipt Date: 20140206
  Transmission Date: 20141002
  Serious: Yes (Hospitalization)
  Sender: FDA-Public Use
  Company Number: PHHY2014CH012115

PATIENT
  Age: 76 Year
  Sex: Male

DRUGS (10)
  1. SIRDALUD [Suspect]
     Dosage: 2 MG, QID
     Route: 048
     Dates: start: 20131125, end: 20131225
  2. IBUPROFEN [Suspect]
     Indication: NECK PAIN
     Dosage: 600 MG, TID
     Route: 048
     Dates: start: 20131125, end: 20131225
  3. ATORVASTATIN [Suspect]
     Dosage: 40 MG, QHS (DAILY IN THE EVENING)
     Route: 048
     Dates: start: 2003, end: 20131229
  4. ZYLORIC [Concomitant]
     Indication: GOUT
     Dosage: UNK UKN, UNK
     Route: 048
     Dates: start: 2003, end: 20131215
  5. AMLODIPINE [Concomitant]
     Indication: ESSENTIAL HYPERTENSION
     Dosage: 5 MG, UNK
     Route: 048
  6. PARIET [Concomitant]
     Dosage: 20 MG, QD
     Route: 048
     Dates: start: 2003
  7. JANUVIA [Concomitant]
     Indication: TYPE 2 DIABETES MELLITUS
     Dosage: 50 MG, QD
     Route: 041
     Dates: start: 2003, end: 20131229
  8. ATACAND [Concomitant]
     Indication: ESSENTIAL HYPERTENSION
     Dosage: 16 MG, QD
     Route: 048
     Dates: start: 2013, end: 20131229
  9. FUROSEMID//FUROSEMIDE [Concomitant]
     Indication: ESSENTIAL HYPERTENSION
     Dosage: 20 MG, QD
     Route: 048
     Dates: start: 2003
  10. BISOPROLOL [Concomitant]
     Indication: ESSENTIAL HYPERTENSION
     Dosage: 5 MG, UNK
     Route: 048
     Dates: start: 200301, end: 20131229

REACTIONS (4)
  - Rhabdomyolysis [Recovering/Resolving]
  - Hepatocellular injury [Recovered/Resolved]
  - Muscular weakness [Recovered/Resolved]
  - Asthenia [Recovered/Resolved]
